FAERS Safety Report 18036524 (Version 2)
Quarter: 2020Q3

REPORT INFORMATION
  Report Type: Spontaneous
  Country: JP (occurrence: JP)
  Receive Date: 20200717
  Receipt Date: 20200803
  Transmission Date: 20201103
  Serious: Yes (Other)
  Sender: FDA-Public Use
  Company Number: JP-BAYER-2020-144779

PATIENT
  Age: 9 Year
  Sex: Male
  Weight: 24.5 kg

DRUGS (3)
  1. ALESION [Suspect]
     Active Substance: EPINASTINE HYDROCHLORIDE
     Dosage: BID, ONCE 1 DROP
     Route: 047
     Dates: start: 20200704
  2. ACTAIR [Suspect]
     Active Substance: DERMATOPHAGOIDES FARINAE\DERMATOPHAGOIDES PTERONYSSINUS
     Indication: RHINITIS ALLERGIC
     Dosage: QD
     Route: 060
     Dates: start: 20200704, end: 20200704
  3. CLARITIN [Suspect]
     Active Substance: LORATADINE
     Indication: RHINITIS ALLERGIC
     Dosage: 10 MG, QD
     Route: 048
     Dates: start: 20200602

REACTIONS (5)
  - Dysstasia [Recovered/Resolved]
  - Hyperventilation [Recovered/Resolved]
  - Thirst [Recovered/Resolved]
  - Loss of consciousness [Recovered/Resolved]
  - Pallor [Recovered/Resolved]

NARRATIVE: CASE EVENT DATE: 20200704
